FAERS Safety Report 9159736 (Version 5)
Quarter: 2013Q2

REPORT INFORMATION
  Report Type: Spontaneous
  Country: US (occurrence: US)
  Receive Date: 20130313
  Receipt Date: 20130502
  Transmission Date: 20140414
  Serious: Yes (Hospitalization, Other)
  Sender: FDA-Public Use
  Company Number: US-PFIZER INC-2013080176

PATIENT
  Age: 72 Year
  Sex: Male
  Weight: 93.74 kg

DRUGS (10)
  1. VFEND [Suspect]
     Indication: BRONCHOPULMONARY ASPERGILLOSIS
     Dosage: 200 MG, UNK
     Route: 048
     Dates: start: 20121212
  2. CARDIZEM [Concomitant]
     Dosage: UNK
  3. SPIRONOLACTONE [Concomitant]
     Dosage: UNK
  4. KEPPRA [Concomitant]
     Dosage: UNK
  5. FUROSEMIDE [Concomitant]
     Dosage: UNK
  6. DECADRON [Concomitant]
     Dosage: UNK
  7. DIGOXIN [Concomitant]
     Dosage: UNK
  8. FLAGYL [Concomitant]
     Dosage: UNK
  9. LASIX [Concomitant]
     Dosage: UNK
  10. POTASSIUM [Concomitant]
     Dosage: UNK

REACTIONS (5)
  - Intestinal perforation [Not Recovered/Not Resolved]
  - Cerebrovascular accident [Unknown]
  - Fluid retention [Not Recovered/Not Resolved]
  - Weight increased [Not Recovered/Not Resolved]
  - Generalised oedema [Not Recovered/Not Resolved]
